FAERS Safety Report 9538285 (Version 2)
Quarter: 2013Q4

REPORT INFORMATION
  Report Type: Spontaneous
  Country: DE (occurrence: DE)
  Receive Date: 20130920
  Receipt Date: 20131011
  Transmission Date: 20140711
  Serious: Yes (Death)
  Sender: FDA-Public Use
  Company Number: DE-BRISTOL-MYERS SQUIBB COMPANY-19371921

PATIENT
  Age: 77 Year
  Sex: Female
  Weight: 53 kg

DRUGS (6)
  1. YERVOY [Suspect]
     Indication: METASTATIC MALIGNANT MELANOMA
     Dosage: ON 20AUG13 ALSO TKN
     Route: 042
     Dates: start: 20130723
  2. DACARBAZINE [Concomitant]
  3. RAMIPRIL [Concomitant]
     Indication: HYPERTENSION
  4. METFORMIN [Concomitant]
     Indication: DIABETES MELLITUS
  5. LYRICA [Concomitant]
     Indication: NEUROPATHY PERIPHERAL
     Dosage: ONE IN THE MORNING AND ONE IN THE EVENING
  6. PANTOZOL [Concomitant]
     Indication: PROPHYLAXIS AGAINST GASTROINTESTINAL ULCER

REACTIONS (1)
  - Hepatic failure [Fatal]
